FAERS Safety Report 25777179 (Version 1)
Quarter: 2025Q3

REPORT INFORMATION
  Report Type: Spontaneous
  Country: EU (occurrence: EU)
  Receive Date: 20250909
  Receipt Date: 20250909
  Transmission Date: 20251020
  Serious: Yes (Other)
  Sender: GENMAB
  Company Number: EU-ABBVIE-6445525

PATIENT
  Sex: Male

DRUGS (1)
  1. EPCORITAMAB [Suspect]
     Active Substance: EPCORITAMAB
     Indication: Diffuse large B-cell lymphoma
     Route: 058
     Dates: start: 202410, end: 202501

REACTIONS (19)
  - Allogenic stem cell transplantation [Unknown]
  - Hepatorenal syndrome [Unknown]
  - Cholangitis [Unknown]
  - Acute graft versus host disease in skin [Unknown]
  - Acute graft versus host disease in intestine [Unknown]
  - Acute graft versus host disease in liver [Unknown]
  - Myelosuppression [Unknown]
  - Systemic candida [Unknown]
  - Pleurisy [Unknown]
  - Enterococcal infection [Unknown]
  - Bacterial infection [Unknown]
  - Pseudomonas infection [Unknown]
  - Splenomegaly [Unknown]
  - Gastrointestinal inflammation [Unknown]
  - Cachexia [Unknown]
  - Immunoglobulins decreased [Unknown]
  - Pneumonia [Unknown]
  - Cytokine release syndrome [Unknown]
  - Therapeutic product effect variable [Unknown]

NARRATIVE: CASE EVENT DATE: 20250101
